FAERS Safety Report 19072961 (Version 1)
Quarter: 2021Q1

REPORT INFORMATION
  Report Type: Spontaneous
  Country: US (occurrence: US)
  Receive Date: 20210330
  Receipt Date: 20210330
  Transmission Date: 20210420
  Serious: No
  Sender: FDA-Public Use
  Company Number: US-APOTEX-2021AP005178

PATIENT
  Age: 74 Year
  Sex: Female

DRUGS (2)
  1. CALCITONIN SALMON (SYNTHETIC ORIGIN) NASAL SPRAY [Suspect]
     Active Substance: CALCITONIN SALMON
     Indication: OSTEOPOROSIS
     Dosage: UNK, QD
     Route: 045
     Dates: start: 202012
  2. RAMIPRIL. [Concomitant]
     Active Substance: RAMIPRIL
     Indication: BLOOD PRESSURE ABNORMAL
     Dosage: 10 MILLIGRAM, Q.AM
     Route: 048

REACTIONS (2)
  - Hair texture abnormal [Not Recovered/Not Resolved]
  - Flushing [Not Recovered/Not Resolved]

NARRATIVE: CASE EVENT DATE: 202101
